FAERS Safety Report 11986889 (Version 11)
Quarter: 2017Q3

REPORT INFORMATION
  Report Type: Spontaneous
  Country: US (occurrence: US)
  Receive Date: 20160202
  Receipt Date: 20170704
  Transmission Date: 20171127
  Serious: Yes (Other)
  Sender: FDA-Public Use
  Company Number: PHEH2016US002434

PATIENT
  Sex: Female
  Weight: 52.15 kg

DRUGS (2)
  1. ONDANSETRON HYDROCHLORIDE. [Suspect]
     Active Substance: ONDANSETRON HYDROCHLORIDE
     Indication: VOMITING IN PREGNANCY
     Dosage: 8 MG, QD
     Route: 065
     Dates: start: 20030101, end: 20040216
  2. ZOFRAN [Suspect]
     Active Substance: ONDANSETRON HYDROCHLORIDE
     Indication: VOMITING IN PREGNANCY
     Dosage: 4 MG, UNK
     Route: 048
     Dates: start: 20031101, end: 20031201

REACTIONS (28)
  - Maternal exposure during pregnancy [Unknown]
  - Urinary tract infection [Unknown]
  - Bacterial vaginosis [Unknown]
  - Rash [Unknown]
  - Injury [Unknown]
  - Eustachian tube disorder [Unknown]
  - Cholelithiasis [Unknown]
  - Change of bowel habit [Unknown]
  - Hepatic cyst [Unknown]
  - Dyspnoea [Unknown]
  - Anxiety [Unknown]
  - Pain [Unknown]
  - Nasal congestion [Unknown]
  - Haemorrhoids [Unknown]
  - Cystitis [Unknown]
  - Diarrhoea [Unknown]
  - Emotional distress [Unknown]
  - Swelling [Unknown]
  - Muscle spasms [Unknown]
  - Haematochezia [Unknown]
  - Sinusitis [Unknown]
  - Pruritus [Unknown]
  - Blood cholesterol increased [Unknown]
  - Fatigue [Unknown]
  - Nasal turbinate hypertrophy [Unknown]
  - Blood urine present [Unknown]
  - Constipation [Unknown]
  - Product use in unapproved indication [Unknown]
